FAERS Safety Report 6454391-0 (Version None)
Quarter: 2009Q4

REPORT INFORMATION
  Report Type: 
  Country: None (occurrence: None)
  Receive Date: 20091124
  Receipt Date: 20091120
  Transmission Date: 20100525
  Serious: Yes (Hospitalization, Other)
  Sender: FDA-Public Use
  Company Number: US-B.I. PHARMACEUTICALS,INC./RIDGEFIELD-2009-BP-13594BP

PATIENT
  Age: 67 Year
  Sex: Male

DRUGS (2)
  1. SPIRIVA [Suspect]
     Indication: CHRONIC OBSTRUCTIVE PULMONARY DISEASE
     Route: 055
  2. MEDICATION NOT OTHERWISE SPECIFIED [Concomitant]
     Indication: CHRONIC OBSTRUCTIVE PULMONARY DISEASE

REACTIONS (10)
  - BLOOD TRIGLYCERIDES INCREASED [None]
  - CARDIOVASCULAR DISORDER [None]
  - CHRONIC LYMPHOCYTIC LEUKAEMIA [None]
  - DYSPHAGIA [None]
  - FUNGAL INFECTION [None]
  - INCREASED APPETITE [None]
  - LYMPHOCYTIC LEUKAEMIA [None]
  - RESPIRATORY TRACT INFECTION FUNGAL [None]
  - VISUAL FIELD DEFECT [None]
  - VISUAL IMPAIRMENT [None]
